FAERS Safety Report 5169872-X (Version None)
Quarter: 2006Q4

REPORT INFORMATION
  Report Type: 
  Country: None (occurrence: None)
  Receive Date: 20061212
  Receipt Date: 20061129
  Transmission Date: 20070319
  Serious: Yes (Other)
  Sender: FDA-Public Use
  Company Number: FR-ELI_LILLY_AND_COMPANY-FR200611005348

PATIENT
  Age: 56 Year
  Sex: Male

DRUGS (3)
  1. ZYPREXA [Suspect]
     Indication: OBSESSIVE-COMPULSIVE DISORDER
     Dosage: 5 MG, DAILY (1/D)
     Route: 048
     Dates: start: 20060501
  2. ANAFRANIL                               /GFR/ [Concomitant]
     Indication: OBSESSIVE-COMPULSIVE DISORDER
     Route: 048
     Dates: start: 20050101
  3. XANAX                                   /USA/ [Concomitant]
     Indication: OBSESSIVE-COMPULSIVE DISORDER
     Route: 048

REACTIONS (5)
  - ANXIETY [None]
  - MENIERE'S DISEASE [None]
  - ORTHOSTATIC HYPOTENSION [None]
  - VERTIGO [None]
  - VOMITING [None]
